FAERS Safety Report 9818889 (Version 4)
Quarter: 2015Q3

REPORT INFORMATION
  Report Type: Report from Study
  Country: AU (occurrence: AU)
  Receive Date: 20140115
  Receipt Date: 20150720
  Transmission Date: 20151125
  Serious: Yes (Death, Hospitalization, Disabling)
  Sender: FDA-Public Use
  Company Number: AU-SA-2013SA133326

PATIENT
  Age: 73 Year
  Sex: Male

DRUGS (9)
  1. BEVACIZUMAB [Suspect]
     Active Substance: BEVACIZUMAB
     Indication: COLORECTAL CANCER METASTATIC
     Route: 042
     Dates: start: 20131120, end: 20131220
  2. PANAMAX [Concomitant]
     Active Substance: ACETAMINOPHEN
     Dates: start: 201310, end: 20140624
  3. TAZOCIN [Concomitant]
     Active Substance: PIPERACILLIN SODIUM\TAZOBACTAM SODIUM
  4. CAPECITABINE. [Suspect]
     Active Substance: CAPECITABINE
     Indication: COLORECTAL CANCER METASTATIC
     Route: 048
     Dates: start: 20131120, end: 20131204
  5. CAPECITABINE. [Suspect]
     Active Substance: CAPECITABINE
     Indication: COLORECTAL CANCER METASTATIC
     Route: 048
     Dates: start: 20140124, end: 20140417
  6. GENTAMICIN SULFATE. [Concomitant]
     Active Substance: GENTAMICIN SULFATE
  7. OXALIPLATIN. [Suspect]
     Active Substance: OXALIPLATIN
     Indication: COLORECTAL CANCER METASTATIC
     Dosage: INFUSION
     Route: 042
     Dates: start: 20131120, end: 20131120
  8. VANCOMYCIN [Concomitant]
     Active Substance: VANCOMYCIN
  9. OXALIPLATIN. [Suspect]
     Active Substance: OXALIPLATIN
     Indication: COLORECTAL CANCER METASTATIC
     Dosage: FORM- INFUSION
     Route: 042
     Dates: start: 20140124, end: 20140417

REACTIONS (2)
  - Sepsis [Recovered/Resolved]
  - Gangrene [Fatal]

NARRATIVE: CASE EVENT DATE: 20131211
